FAERS Safety Report 15945884 (Version 7)
Quarter: 2019Q4

REPORT INFORMATION
  Report Type: Report from Study
  Country: None (occurrence: US)
  Receive Date: 20190211
  Receipt Date: 20191101
  Transmission Date: 20200122
  Serious: Yes (Hospitalization, Other)
  Sender: FDA-Public Use
  Company Number: US-ABBVIE-19K-163-2656548-00

PATIENT
  Age: 71 Year
  Sex: Male
  Weight: 83.99 kg

DRUGS (1)
  1. HUMIRA [Suspect]
     Active Substance: ADALIMUMAB
     Indication: COLITIS ULCERATIVE
     Route: 058
     Dates: start: 20180412

REACTIONS (8)
  - Post procedural complication [Recovering/Resolving]
  - Chronic kidney disease [Recovering/Resolving]
  - Vocal cord paralysis [Recovering/Resolving]
  - Post procedural stroke [Recovering/Resolving]
  - Loss of personal independence in daily activities [Not Recovered/Not Resolved]
  - Procedural haemorrhage [Unknown]
  - Carotid artery occlusion [Unknown]
  - Arterial repair [Recovered/Resolved]

NARRATIVE: CASE EVENT DATE: 20181130
